FAERS Safety Report 8781300 (Version 2)
Quarter: 2013Q4

REPORT INFORMATION
  Report Type: Spontaneous
  Country: US (occurrence: US)
  Receive Date: 20120913
  Receipt Date: 20131101
  Transmission Date: 20140711
  Serious: No
  Sender: FDA-Public Use
  Company Number: US-009507513-1208USA008265

PATIENT
  Age: 18 Year
  Sex: Male

DRUGS (1)
  1. AZASITE [Suspect]
     Indication: CONJUNCTIVITIS BACTERIAL
     Dosage: DROPS 1%, INSTILL 1 DROP IN THE AFFECTED EYE(S) TWICE DAILY
     Route: 047
     Dates: start: 201208

REACTIONS (1)
  - Eye irritation [Recovered/Resolved]
